FAERS Safety Report 15327854 (Version 1)
Quarter: 2018Q3

REPORT INFORMATION
  Report Type: Spontaneous
  Country: US (occurrence: US)
  Receive Date: 20180828
  Receipt Date: 20180828
  Transmission Date: 20181010
  Serious: No
  Sender: FDA-Public Use
  Company Number: US-ROCHE-2122882

PATIENT
  Sex: Male

DRUGS (9)
  1. LACTOSE [Concomitant]
     Active Substance: LACTOSE
  2. CLONIDINE. [Concomitant]
     Active Substance: CLONIDINE
  3. PROZAC [Concomitant]
     Active Substance: FLUOXETINE HYDROCHLORIDE
  4. LOSARTAN. [Concomitant]
     Active Substance: LOSARTAN
  5. ROCEPHIN [Suspect]
     Active Substance: CEFTRIAXONE SODIUM
     Indication: PRODUCT USED FOR UNKNOWN INDICATION
     Route: 065
  6. BUSPIRONE [Concomitant]
     Active Substance: BUSPIRONE HYDROCHLORIDE
  7. INDOMETHACIN. [Concomitant]
     Active Substance: INDOMETHACIN
  8. NYSTATIN. [Concomitant]
     Active Substance: NYSTATIN
  9. LIPITOR [Concomitant]
     Active Substance: ATORVASTATIN CALCIUM

REACTIONS (1)
  - Hypersensitivity [Unknown]
